FAERS Safety Report 7591666-6 (Version None)
Quarter: 2011Q3

REPORT INFORMATION
  Report Type: 
  Country: None (occurrence: None)
  Receive Date: 20110706
  Receipt Date: 20090930
  Transmission Date: 20111222
  Serious: Yes (Other)
  Sender: FDA-Public Use
  Company Number: US-BAYER-2011-006366

PATIENT
  Age: 71 Year
  Sex: Male
  Weight: 73 kg

DRUGS (23)
  1. ZOCOR [Concomitant]
     Dosage: 20 MG, HS
  2. VIAGRA [Concomitant]
  3. TRASYLOL [Suspect]
     Indication: ANEURYSM REPAIR
     Dosage: 50 CC PER HOUR
     Route: 042
     Dates: start: 20040319
  4. LOPRESSOR [Concomitant]
     Dosage: 50 MG, BID
  5. LASIX [Concomitant]
     Dosage: 20 UNK, UNK
     Route: 042
  6. NOREPINEPHRINE BITARTRATE [Concomitant]
     Route: 042
  7. LISINOPRIL [Concomitant]
     Dosage: 10 MG, HS
  8. ANCEF [Concomitant]
     Dosage: 1 G, UNK
     Route: 042
  9. FENTANYL [Concomitant]
     Route: 042
  10. XANAX [Concomitant]
  11. HYDROCHLOROTHIAZIDE [Concomitant]
     Dosage: 12.5 MG, QD
  12. HEPARIN [Concomitant]
     Route: 042
  13. EPINEPHRINE [Concomitant]
     Route: 042
  14. MIDAZOLAM HCL [Concomitant]
     Route: 042
  15. MANNITOL [Concomitant]
     Route: 042
  16. TRASYLOL [Suspect]
     Indication: AORTIC DISSECTION
     Dosage: 1 ML (INITIAL DOSE)
     Route: 042
     Dates: start: 20040319
  17. TRASYLOL [Suspect]
     Indication: CORONARY ARTERY BYPASS
     Dosage: 200 CC, UNK
     Route: 042
     Dates: start: 20040319
  18. POTASSIUM CHLORIDE [Concomitant]
     Route: 042
  19. PROTAMINE SULFATE [Concomitant]
     Route: 042
  20. SOLU-MEDROL [Concomitant]
     Dosage: 1 G, UNK
     Route: 042
  21. PENTOTHAL [Concomitant]
     Dosage: 500 MG, UNK
     Route: 042
  22. CALCIUM CHLORIDE [Concomitant]
     Route: 042
  23. PANCURONIUM [Concomitant]
     Route: 042

REACTIONS (13)
  - RENAL FAILURE [None]
  - INJURY [None]
  - ANXIETY [None]
  - FEAR OF DEATH [None]
  - FEAR [None]
  - PAIN [None]
  - PSYCHIATRIC SYMPTOM [None]
  - UNEVALUABLE EVENT [None]
  - DEPRESSION [None]
  - MULTI-ORGAN FAILURE [None]
  - NERVOUSNESS [None]
  - RENAL INJURY [None]
  - EMOTIONAL DISTRESS [None]
